FAERS Safety Report 16785445 (Version 2)
Quarter: 2019Q4

REPORT INFORMATION
  Report Type: Report from Study
  Country: US (occurrence: US)
  Receive Date: 20190909
  Receipt Date: 20191011
  Transmission Date: 20200122
  Serious: Yes (Hospitalization, Other)
  Sender: FDA-Public Use
  Company Number: US-ASTELLAS-2019US035509

PATIENT
  Sex: Male

DRUGS (1)
  1. ENZALUTAMIDE [Suspect]
     Active Substance: ENZALUTAMIDE
     Indication: HORMONE-REFRACTORY PROSTATE CANCER
     Dosage: 160 MG, ONCE DAILY (4-40MG CAPSULES)
     Route: 048
     Dates: start: 20190727

REACTIONS (3)
  - Cystitis [Recovered/Resolved]
  - Kidney infection [Recovered/Resolved]
  - Gastrointestinal infection [Recovered/Resolved]
